FAERS Safety Report 8556958-2 (Version None)
Quarter: 2012Q3

REPORT INFORMATION
  Report Type: 
  Country: None (occurrence: None)
  Receive Date: 20120801
  Receipt Date: 20120725
  Transmission Date: 20120928
  Serious: Yes (Other)
  Sender: FDA-Public Use
  Company Number: US-JNJFOC-20120713158

PATIENT
  Sex: Male

DRUGS (2)
  1. XARELTO [Suspect]
     Indication: THROMBOSIS PROPHYLAXIS
     Route: 048
     Dates: start: 20120701, end: 20120724
  2. XARELTO [Suspect]
     Indication: ORTHOPEDIC PROCEDURE
     Route: 048
     Dates: start: 20120701, end: 20120724

REACTIONS (2)
  - WOUND SECRETION [None]
  - OEDEMA PERIPHERAL [None]
